FAERS Safety Report 8895320 (Version 2)
Quarter: 2012Q4

REPORT INFORMATION
  Report Type: 
  Country: CA (occurrence: CA)
  Receive Date: 20121108
  Receipt Date: 20121220
  Transmission Date: 20130627
  Serious: Yes (Other)
  Sender: FDA-Public Use
  Company Number: CA-PFIZER INC-2012277577

PATIENT
  Age: 44 Year
  Sex: Male
  Weight: 127.89 kg

DRUGS (5)
  1. LYRICA [Suspect]
     Indication: PELVIC PAIN
     Dosage: 300 mg, 2x/day
     Route: 048
     Dates: start: 20120104, end: 20121207
  2. OXYNEO [Concomitant]
     Dosage: 60 mg, 3x/day
     Dates: start: 20120327
  3. OXYNEO [Concomitant]
     Dosage: 30 mg, 2x/day
     Dates: start: 20120531
  4. SERC [Concomitant]
     Dosage: 24 mg, 3x/day
     Dates: start: 20100621
  5. NASONEX [Concomitant]
     Dosage: UNK
     Dates: start: 20100402

REACTIONS (1)
  - Convulsion [Recovered/Resolved]
